FAERS Safety Report 12142756 (Version 1)
Quarter: 2016Q1

REPORT INFORMATION
  Report Type: Spontaneous
  Country: US (occurrence: US)
  Receive Date: 20160303
  Receipt Date: 20160303
  Transmission Date: 20160526
  Serious: No
  Sender: FDA-Public Use
  Company Number: US-PERRIGO-13US009209

PATIENT
  Age: 75 Year
  Sex: Female
  Weight: 56.69 kg

DRUGS (2)
  1. SYNTHROID [Concomitant]
     Active Substance: LEVOTHYROXINE SODIUM
     Indication: THYROID DISORDER
     Dosage: UNK
     Route: 048
  2. BETAMETHASONE VALERATE. [Suspect]
     Active Substance: BETAMETHASONE VALERATE
     Indication: SKIN DISORDER
     Dosage: 1 APPLICATION, ONCE EVERY THREE DAYS
     Route: 061
     Dates: start: 20130727, end: 20130901

REACTIONS (3)
  - Wrong technique in product usage process [Recovered/Resolved]
  - No adverse event [Recovered/Resolved]
  - Inappropriate schedule of drug administration [Recovered/Resolved]

NARRATIVE: CASE EVENT DATE: 20130727
